FAERS Safety Report 18774565 (Version 1)
Quarter: 2021Q1

REPORT INFORMATION
  Report Type: Report from Study
  Country: US (occurrence: US)
  Receive Date: 20210122
  Receipt Date: 20210122
  Transmission Date: 20210419
  Serious: Yes (Other)
  Sender: FDA-Public Use
  Company Number: US-ASTRAZENECA-2021A009130

PATIENT
  Sex: Female

DRUGS (1)
  1. LYNPARZA [Suspect]
     Active Substance: OLAPARIB
     Indication: BREAST CANCER FEMALE
     Route: 048

REACTIONS (5)
  - Metastases to neck [Unknown]
  - Metastases to lymph nodes [Unknown]
  - Metastases to stomach [Unknown]
  - Drug ineffective [Unknown]
  - Malignant neoplasm progression [Unknown]
